FAERS Safety Report 21357667 (Version 1)
Quarter: 2022Q3

REPORT INFORMATION
  Report Type: Spontaneous
  Country: US (occurrence: US)
  Receive Date: 20220921
  Receipt Date: 20220921
  Transmission Date: 20221027
  Serious: No
  Sender: FDA-Public Use
  Company Number: US-BIOGEN-2022BI01155483

PATIENT
  Sex: Female

DRUGS (19)
  1. TYSABRI [Suspect]
     Active Substance: NATALIZUMAB
     Indication: Multiple sclerosis
     Route: 050
  2. TECFIDERA [Suspect]
     Active Substance: DIMETHYL FUMARATE
     Indication: Multiple sclerosis
     Route: 050
  3. ELIQUIS [Concomitant]
     Active Substance: APIXABAN
     Route: 050
  4. BACLOFEN [Concomitant]
     Active Substance: BACLOFEN
     Route: 050
  5. DANTROLENE [Concomitant]
     Active Substance: DANTROLENE
     Route: 050
  6. LEVETIRACETAM [Concomitant]
     Active Substance: LEVETIRACETAM
     Route: 050
  7. OXCARBAZEPINE [Concomitant]
     Active Substance: OXCARBAZEPINE
     Route: 050
  8. AMLODIPINE [Concomitant]
     Active Substance: AMLODIPINE BESYLATE
     Route: 050
  9. WELLBUTRIN [Concomitant]
     Active Substance: BUPROPION HYDROCHLORIDE
     Route: 050
  10. MECLIZINE [Concomitant]
     Active Substance: MECLIZINE HYDROCHLORIDE
     Route: 050
  11. LASIX [Concomitant]
     Active Substance: FUROSEMIDE
     Route: 050
  12. VALERIAN [Concomitant]
     Active Substance: VALERIAN
     Route: 050
  13. ALPHAGAN P [Concomitant]
     Active Substance: BRIMONIDINE TARTRATE
     Route: 050
  14. TIMOLOL [Concomitant]
     Active Substance: TIMOLOL
     Route: 050
  15. TOBRAMYCIN [Concomitant]
     Active Substance: TOBRAMYCIN
     Route: 050
  16. DEXAMETHASONE [Concomitant]
     Active Substance: DEXAMETHASONE
     Route: 050
  17. BELBUCA [Concomitant]
     Active Substance: BUPRENORPHINE HYDROCHLORIDE
     Route: 050
  18. OCREVUS [Concomitant]
     Active Substance: OCRELIZUMAB
     Route: 050
  19. SOLU-MEDROL [Concomitant]
     Active Substance: METHYLPREDNISOLONE SODIUM SUCCINATE
     Route: 050

REACTIONS (3)
  - Skin reaction [Not Recovered/Not Resolved]
  - Skin exfoliation [Not Recovered/Not Resolved]
  - Rash [Not Recovered/Not Resolved]
